FAERS Safety Report 6485571-6 (Version None)
Quarter: 2009Q4

REPORT INFORMATION
  Report Type: 
  Country: None (occurrence: None)
  Receive Date: 20091204
  Receipt Date: 20091126
  Transmission Date: 20100525
  Serious: Yes (Other)
  Sender: FDA-Public Use
  Company Number: 2009EU003806

PATIENT
  Age: 60 Year
  Sex: Male
  Weight: 74 kg

DRUGS (5)
  1. VESICARE [Suspect]
     Indication: POLLAKIURIA
     Dosage: 5MG, UID/QD, ORAL
     Route: 048
     Dates: start: 20090825
  2. METFORMIN HCL [Concomitant]
  3. HUMALOG [Concomitant]
  4. LISINOPRIL [Concomitant]
  5. INSULIN DETEMIR (INSULIN DETEMIR) [Suspect]

REACTIONS (1)
  - HYPOGLYCAEMIA [None]
